FAERS Safety Report 9904314 (Version 1)
Quarter: 2014Q1

REPORT INFORMATION
  Report Type: Spontaneous
  Country: US (occurrence: US)
  Receive Date: 20140218
  Receipt Date: 20140218
  Transmission Date: 20141002
  Serious: No
  Sender: FDA-Public Use
  Company Number: US-PFIZER INC-2014043835

PATIENT
  Age: 64 Year
  Sex: Female
  Weight: 72.56 kg

DRUGS (3)
  1. LYRICA [Suspect]
     Indication: SCIATICA
     Dosage: UNK
     Dates: start: 201402, end: 201402
  2. LYRICA [Suspect]
     Dosage: 150 MG, 2X/DAY
     Dates: start: 201402
  3. ALEVE [Concomitant]
     Indication: PAIN
     Dosage: UNK, AS NEEDED

REACTIONS (2)
  - Sedation [Not Recovered/Not Resolved]
  - Electromyogram abnormal [Unknown]
